FAERS Safety Report 8708272 (Version 2)
Quarter: 2014Q1

REPORT INFORMATION
  Report Type: Spontaneous
  Country: US (occurrence: US)
  Receive Date: 20120806
  Receipt Date: 20140106
  Transmission Date: 20141002
  Serious: Yes (Other)
  Sender: FDA-Public Use
  Company Number: US-JNJFOC-20120714468

PATIENT
  Sex: Male
  Weight: 156.49 kg

DRUGS (5)
  1. DURAGESIC [Suspect]
     Indication: BACK PAIN
     Route: 062
  2. DURAGESIC [Suspect]
     Indication: BACK PAIN
     Route: 062
     Dates: start: 2011
  3. DURAGESIC [Suspect]
     Indication: BACK PAIN
     Route: 062
     Dates: start: 2011, end: 2011
  4. METFORMIN [Concomitant]
     Indication: DIABETES MELLITUS
     Route: 065
  5. VICTOZA [Concomitant]
     Indication: DIABETES MELLITUS
     Route: 065
     Dates: end: 2012

REACTIONS (5)
  - Diabetes mellitus [Unknown]
  - Drug ineffective [Not Recovered/Not Resolved]
  - Product quality issue [Unknown]
  - Product quality issue [Unknown]
  - Wrong technique in drug usage process [Unknown]
